FAERS Safety Report 4593805-8 (Version None)
Quarter: 2005Q1

REPORT INFORMATION
  Report Type: 
  Country: None (occurrence: None)
  Receive Date: 20050301
  Receipt Date: 20050209
  Transmission Date: 20050727
  Serious: Yes (Death)
  Sender: FDA-Public Use
  Company Number: 200510472JP

PATIENT
  Age: 65 Year
  Sex: Male
  Weight: 47 kg

DRUGS (4)
  1. TAXOTERE [Suspect]
     Route: 041
     Dates: start: 20041115, end: 20041115
  2. G-CSF [Suspect]
     Indication: FEBRILE NEUTROPENIA
     Route: 058
     Dates: start: 20041124, end: 20041124
  3. CEFEPIME [Concomitant]
     Indication: FEBRILE NEUTROPENIA
     Route: 041
     Dates: start: 20041126, end: 20041201
  4. RADIOTHERAPY [Concomitant]
     Dates: start: 20030519

REACTIONS (8)
  - COLLAPSE OF LUNG [None]
  - DRUG INEFFECTIVE [None]
  - FEBRILE NEUTROPENIA [None]
  - INTERSTITIAL LUNG DISEASE [None]
  - PANCYTOPENIA [None]
  - PNEUMOMEDIASTINUM [None]
  - PNEUMOTHORAX [None]
  - SUBCUTANEOUS EMPHYSEMA [None]
